FAERS Safety Report 24961139 (Version 1)
Quarter: 2025Q1

REPORT INFORMATION
  Report Type: Report from Study
  Country: US (occurrence: US)
  Receive Date: 20250212
  Receipt Date: 20250212
  Transmission Date: 20250408
  Serious: Yes (Other)
  Sender: OTSUKA
  Company Number: US-MMM-Otsuka-PF2K87H0

PATIENT
  Age: 68 Year
  Sex: Female
  Weight: 73.94 kg

DRUGS (3)
  1. ARIPIPRAZOLE [Suspect]
     Active Substance: ARIPIPRAZOLE
     Indication: Product used for unknown indication
     Route: 065
  2. ARISTADA [Suspect]
     Active Substance: ARIPIPRAZOLE LAUROXIL
     Indication: Product used for unknown indication
     Route: 065
     Dates: start: 20250128
  3. ASPIRIN [Concomitant]
     Active Substance: ASPIRIN
     Indication: Product used for unknown indication
     Route: 065

REACTIONS (9)
  - Hallucination [Unknown]
  - Hyperaesthesia [Unknown]
  - Ear discomfort [Unknown]
  - Eye pain [Unknown]
  - Salivary hypersecretion [Unknown]
  - Injection site pain [Recovered/Resolved]
  - Somnolence [Unknown]
  - Headache [Unknown]
  - Therapy change [Unknown]

NARRATIVE: CASE EVENT DATE: 20250128
